FAERS Safety Report 4438712-6 (Version None)
Quarter: 2004Q3

REPORT INFORMATION
  Report Type: 
  Country: None (occurrence: None)
  Receive Date: 20040830
  Receipt Date: 20040830
  Transmission Date: 20050211
  Serious: No
  Sender: FDA-Public Use
  Company Number: None

PATIENT
  Age: 64 Year
  Sex: Male
  Weight: 98.8842 kg

DRUGS (2)
  1. ZYVOX [Suspect]
     Indication: STAPHYLOCOCCAL INFECTION
     Dosage: 600MG EVERY 12 H INTRAVENOUS
     Route: 042
     Dates: start: 20040810, end: 20040901
  2. PAXIL [Suspect]
     Indication: DEPRESSION
     Dosage: 20MG DAILY ORAL
     Route: 048
     Dates: start: 20040818, end: 20040823

REACTIONS (3)
  - HYPERTHERMIA [None]
  - MENTAL STATUS CHANGES [None]
  - TREMOR [None]
